FAERS Safety Report 13425709 (Version 1)
Quarter: 2017Q2

REPORT INFORMATION
  Report Type: Spontaneous
  Country: US (occurrence: US)
  Receive Date: 20170410
  Receipt Date: 20170410
  Transmission Date: 20170830
  Serious: No
  Sender: FDA-Public Use
  Company Number: None

PATIENT
  Age: 12 Year
  Sex: Male

DRUGS (1)
  1. PROMACTA [Suspect]
     Active Substance: ELTROMBOPAG OLAMINE

REACTIONS (4)
  - Pyrexia [None]
  - Drug dose omission [None]
  - Peripheral swelling [None]
  - Respiratory disorder [None]

NARRATIVE: CASE EVENT DATE: 20170409
